FAERS Safety Report 14178745 (Version 2)
Quarter: 2017Q4

REPORT INFORMATION
  Report Type: Report from Study
  Country: DE (occurrence: DE)
  Receive Date: 20171110
  Receipt Date: 20171212
  Transmission Date: 20180321
  Serious: Yes (Other)
  Sender: FDA-Public Use
  Company Number: DE-INCYTE CORPORATION-2016IN005825

PATIENT

DRUGS (6)
  1. BISOPROLOL [Concomitant]
     Active Substance: BISOPROLOL
     Indication: HYPERTENSION
     Dosage: 2.5 MG, QD
     Route: 065
  2. INCB018424 [Suspect]
     Active Substance: RUXOLITINIB
     Dosage: 30 MG, QD (2 DF OF 5 MG AND 1 DF OF 20 MG PER DAY)
     Route: 048
     Dates: start: 20150210, end: 20150507
  3. INCB018424 [Suspect]
     Active Substance: RUXOLITINIB
     Indication: PRIMARY MYELOFIBROSIS
     Dosage: 2 DF (20 MG), QD
     Route: 048
     Dates: start: 20150128, end: 20150209
  4. INCB018424 [Suspect]
     Active Substance: RUXOLITINIB
     Dosage: 2 DF (5 MG), QD
     Route: 048
     Dates: start: 20150721
  5. INCB018424 [Suspect]
     Active Substance: RUXOLITINIB
     Dosage: 2 DF (10 MG), QD
     Route: 048
     Dates: start: 20150508, end: 20150707
  6. INCB018424 [Suspect]
     Active Substance: RUXOLITINIB
     Dosage: 5 MG, BID
     Route: 048
     Dates: start: 20170418, end: 20170528

REACTIONS (4)
  - Anaemia [Not Recovered/Not Resolved]
  - Cytopenia [Recovered/Resolved]
  - White blood cell count decreased [Unknown]
  - Neutropenia [Recovered/Resolved]

NARRATIVE: CASE EVENT DATE: 20150210
